FAERS Safety Report 8512546 (Version 2)
Quarter: 2013Q1

REPORT INFORMATION
  Report Type: Spontaneous
  Country: US (occurrence: US)
  Receive Date: 20120413
  Receipt Date: 20130326
  Transmission Date: 20140127
  Serious: No
  Sender: FDA-Public Use
  Company Number: US-ASTRAZENECA-2011SE63602

PATIENT
  Age: 43 Year
  Sex: Male

DRUGS (4)
  1. NEXIUM [Suspect]
     Indication: GASTROOESOPHAGEAL REFLUX DISEASE
     Route: 048
  2. SEROQUEL [Suspect]
     Indication: BIPOLAR DISORDER
     Route: 048
  3. SEROQUEL [Suspect]
     Indication: BIPOLAR DISORDER
     Route: 048
  4. LITHIUM [Concomitant]

REACTIONS (8)
  - Mania [Unknown]
  - Neuralgia [Unknown]
  - Exophthalmos [Unknown]
  - Feeling abnormal [Unknown]
  - Malaise [Unknown]
  - Withdrawal syndrome [None]
  - Insomnia [Unknown]
  - Drug dose omission [Unknown]
